FAERS Safety Report 17463791 (Version 4)
Quarter: 2020Q4

REPORT INFORMATION
  Report Type: Spontaneous
  Country: US (occurrence: US)
  Receive Date: 20200226
  Receipt Date: 20201013
  Transmission Date: 20210113
  Serious: Yes (Hospitalization, Other)
  Sender: FDA-Public Use
  Company Number: US-ROCHE-2552137

PATIENT
  Sex: Female

DRUGS (13)
  1. ESBRIET [Suspect]
     Active Substance: PIRFENIDONE
     Indication: ASTHMA
     Dosage: 3 CAPSULES THRICE A DAY WITH MEALS
     Route: 048
  2. BENZONATATE. [Concomitant]
     Active Substance: BENZONATATE
  3. LORATADINE. [Concomitant]
     Active Substance: LORATADINE
  4. VITAMIN C [Concomitant]
     Active Substance: ASCORBIC ACID
  5. CRANBERRY. [Concomitant]
     Active Substance: CRANBERRY
  6. TERAZOSIN HCL [Concomitant]
     Active Substance: TERAZOSIN HYDROCHLORIDE
  7. FASENRA [Concomitant]
     Active Substance: BENRALIZUMAB
     Dosage: 30MG/ML
  8. QUETIAPINE FUMARATE. [Concomitant]
     Active Substance: QUETIAPINE FUMARATE
  9. ATORVASTATIN [Concomitant]
     Active Substance: ATORVASTATIN
  10. KEPPRA [Concomitant]
     Active Substance: LEVETIRACETAM
  11. CLONAZEPAM. [Concomitant]
     Active Substance: CLONAZEPAM
  12. ALBUTEROL. [Concomitant]
     Active Substance: ALBUTEROL
  13. LAMOTRIGINE. [Concomitant]
     Active Substance: LAMOTRIGINE

REACTIONS (4)
  - Urinary tract infection [Not Recovered/Not Resolved]
  - Fall [Unknown]
  - Intentional product use issue [Unknown]
  - Off label use [Unknown]
